FAERS Safety Report 4355513-8 (Version None)
Quarter: 2004Q2

REPORT INFORMATION
  Report Type: 
  Country: None (occurrence: None)
  Receive Date: 20040503
  Receipt Date: 20030429
  Transmission Date: 20050107
  Serious: Yes (Life-Threatening, Hospitalization)
  Sender: FDA-Public Use
  Company Number: PHEH2003US03468

PATIENT
  Age: 49 Year
  Sex: Male
  Weight: 106.6 kg

DRUGS (4)
  1. LOTREL [Suspect]
     Indication: HYPERTENSION
     Dosage: 10 MG AMLOD/20MG BENAZ/ QD, ORAL
     Route: 048
     Dates: start: 20030408, end: 20030423
  2. BIAXIN [Concomitant]
  3. COVERA-HS [Concomitant]
  4. VIAGRA [Concomitant]

REACTIONS (6)
  - ANGIONEUROTIC OEDEMA [None]
  - COUGH [None]
  - DYSPHAGIA [None]
  - EPIGLOTTITIS [None]
  - HYPOVENTILATION [None]
  - SECRETION DISCHARGE [None]
